FAERS Safety Report 7531119-4 (Version None)
Quarter: 2011Q2

REPORT INFORMATION
  Report Type: 
  Country: None (occurrence: None)
  Receive Date: 20110608
  Receipt Date: 20110527
  Transmission Date: 20111010
  Serious: Yes (Other)
  Sender: FDA-Public Use
  Company Number: ES-JNJFOC-20100304214

PATIENT
  Sex: Female
  Weight: 53 kg

DRUGS (12)
  1. RALTEGRAVIR [Suspect]
     Route: 048
     Dates: start: 20090901, end: 20100217
  2. TRUVADA [Suspect]
     Indication: HIV INFECTION
     Dates: start: 20080930, end: 20090801
  3. NORVIR [Suspect]
     Indication: HIV INFECTION
     Dates: start: 20100318
  4. NORVIR [Suspect]
     Dates: start: 20080930, end: 20090801
  5. RALTEGRAVIR [Suspect]
     Route: 048
     Dates: start: 20080930, end: 20090801
  6. COMBIVIR [Suspect]
     Indication: HIV INFECTION
     Dates: start: 20100318
  7. PREZISTA [Suspect]
     Route: 048
     Dates: start: 20100318
  8. PREZISTA [Suspect]
     Route: 048
     Dates: start: 20090901, end: 20100217
  9. NORVIR [Suspect]
     Dates: start: 20090901, end: 20100217
  10. RALTEGRAVIR [Suspect]
     Indication: HIV INFECTION
     Route: 048
     Dates: start: 20100318
  11. PREZISTA [Suspect]
     Indication: HIV INFECTION
     Route: 048
     Dates: start: 20080930, end: 20090801
  12. TRUVADA [Suspect]
     Dates: start: 20090901, end: 20100217

REACTIONS (3)
  - PREMATURE DELIVERY [None]
  - DRUG EXPOSURE DURING PREGNANCY [None]
  - PREMATURE RUPTURE OF MEMBRANES [None]
